FAERS Safety Report 5949137-6 (Version None)
Quarter: 2008Q4

REPORT INFORMATION
  Report Type: 
  Country: None (occurrence: None)
  Receive Date: 20081111
  Receipt Date: 20081105
  Transmission Date: 20090506
  Serious: No
  Sender: FDA-Public Use
  Company Number: US-B.I. PHARMACEUTICALS,INC./RIDGEFIELD-2008-BP-16110BP

PATIENT
  Sex: Female

DRUGS (10)
  1. COMBIVENT [Suspect]
     Indication: CHRONIC OBSTRUCTIVE PULMONARY DISEASE
     Dosage: 8PUF
     Route: 055
  2. FLOVENT [Concomitant]
     Dosage: 4PUF
  3. ALBUTEROL [Concomitant]
  4. CARDIZEM [Concomitant]
     Dosage: 180MG
  5. FAMOTIDINE [Concomitant]
     Dosage: 40MG
  6. THYROXIN [Concomitant]
     Dosage: 100MG
  7. MIACALCIN [Concomitant]
     Dosage: 200U
  8. SLO-MAG [Concomitant]
  9. OS-CAL [Concomitant]
  10. ASPIRIN [Concomitant]
     Dosage: 81MG

REACTIONS (5)
  - DYSGEUSIA [None]
  - HYPOVENTILATION [None]
  - MALAISE [None]
  - PULMONARY CONGESTION [None]
  - RESPIRATORY TRACT IRRITATION [None]
